FAERS Safety Report 5694745-3 (Version None)
Quarter: 2008Q2

REPORT INFORMATION
  Report Type: 
  Country: None (occurrence: None)
  Receive Date: 20080403
  Receipt Date: 20080403
  Transmission Date: 20081010
  Serious: Yes (Other)
  Sender: FDA-Public Use
  Company Number: None

PATIENT
  Age: 5 Year
  Sex: Female
  Weight: 19.9583 kg

DRUGS (1)
  1. BACTRIM [Suspect]
     Indication: URINARY TRACT INFECTION
     Dosage: 1 TSP 3 TIMES/DAY PO
     Route: 048
     Dates: start: 20080103, end: 20080110

REACTIONS (1)
  - URTICARIA [None]
